FAERS Safety Report 4384211-X (Version None)
Quarter: 2004Q2

REPORT INFORMATION
  Report Type: 
  Country: None (occurrence: None)
  Receive Date: 20040614
  Receipt Date: 20040303
  Transmission Date: 20050107
  Serious: Yes (Other)
  Sender: FDA-Public Use
  Company Number: 2004199658US

PATIENT
  Sex: Female

DRUGS (1)
  1. ZYVOX [Suspect]
     Indication: ATYPICAL MYCOBACTERIAL INFECTION
     Dosage: 600 MG, BID

REACTIONS (3)
  - PLATELET COUNT DECREASED [None]
  - RED BLOOD CELL COUNT DECREASED [None]
  - WHITE BLOOD CELL COUNT DECREASED [None]
